FAERS Safety Report 9117869 (Version 1)
Quarter: 2013Q1

REPORT INFORMATION
  Report Type: Spontaneous
  Country: US (occurrence: US)
  Receive Date: 20130225
  Receipt Date: 20130225
  Transmission Date: 20140127
  Serious: No
  Sender: FDA-Public Use
  Company Number: US-009507513-1302USA009412

PATIENT
  Sex: Female

DRUGS (5)
  1. JANUVIA [Suspect]
     Indication: BLOOD GLUCOSE INCREASED
     Dosage: 1 TABLET/ TWICE A DAY
     Route: 048
     Dates: start: 201301
  2. METFORMIN [Concomitant]
  3. GLIPIZIDE [Concomitant]
  4. SIMVASTATIN [Concomitant]
  5. LISINOPRIL [Concomitant]

REACTIONS (4)
  - Blood glucose fluctuation [Not Recovered/Not Resolved]
  - Cough [Not Recovered/Not Resolved]
  - Lower respiratory tract infection [Not Recovered/Not Resolved]
  - Weight increased [Not Recovered/Not Resolved]
